FAERS Safety Report 21969379 (Version 2)
Quarter: 2023Q1

REPORT INFORMATION
  Report Type: Spontaneous
  Country: US (occurrence: US)
  Receive Date: 20230208
  Receipt Date: 20230210
  Transmission Date: 20230417
  Serious: No
  Sender: FDA-Public Use
  Company Number: US-GALDERMA-US2023000229

PATIENT

DRUGS (2)
  1. EPSOLAY [Suspect]
     Active Substance: BENZOYL PEROXIDE
     Indication: Rosacea
     Dosage: 1 DOSAGE FORM, BID
     Route: 061
     Dates: start: 20221110
  2. EPSOLAY [Suspect]
     Active Substance: BENZOYL PEROXIDE
     Dosage: UNK, QD
     Route: 061
     Dates: start: 202211

REACTIONS (2)
  - Acne [Recovered/Resolved]
  - Intentional product use issue [Recovered/Resolved]

NARRATIVE: CASE EVENT DATE: 20221112
